FAERS Safety Report 15761744 (Version 1)
Quarter: 2018Q4

REPORT INFORMATION
  Report Type: Spontaneous
  Country: JP (occurrence: JP)
  Receive Date: 20181226
  Receipt Date: 20181226
  Transmission Date: 20190205
  Serious: Yes (Hospitalization, Other)
  Sender: FDA-Public Use
  Company Number: JP-009507513-1812JPN000542J

PATIENT
  Age: 79 Year
  Sex: Male
  Weight: 74 kg

DRUGS (7)
  1. DOVOBET [Concomitant]
     Active Substance: BETAMETHASONE\CALCIPOTRIENE
     Indication: PSORIASIS
     Dosage: UNK
     Route: 003
     Dates: start: 20180508, end: 20181212
  2. MYSLEE [Concomitant]
     Active Substance: ZOLPIDEM TARTRATE
     Indication: INSOMNIA
     Dosage: 5 MILLIGRAM, QD
     Route: 048
     Dates: start: 20180508, end: 20181212
  3. POSTERISAN [Concomitant]
     Active Substance: LIDOCAINE
     Indication: HAEMORRHOIDS
     Dosage: 2 GRAM, BID
     Dates: start: 20180508, end: 20181212
  4. NORVASC [Concomitant]
     Active Substance: AMLODIPINE BESYLATE
     Indication: HYPERTENSION
     Dosage: 5 MILLIGRAM, QD
     Route: 048
     Dates: start: 20180509, end: 20181212
  5. KEYTRUDA [Suspect]
     Active Substance: PEMBROLIZUMAB
     Indication: NON-SMALL CELL LUNG CANCER
     Dosage: 200 MILLIGRAM, Q3W
     Route: 041
     Dates: start: 20180509, end: 20180711
  6. METHYCOBAL [Concomitant]
     Active Substance: METHYLCOBALAMIN
     Indication: PSORIASIS
     Dosage: 500 MICROGRAM, BID
     Route: 048
     Dates: start: 20180508, end: 20180522
  7. EPADEL S [Concomitant]
     Active Substance: ICOSAPENT ETHYL
     Indication: HYPERLIPIDAEMIA
     Dosage: 900 MILLIGRAM, BID
     Route: 048
     Dates: start: 20180508

REACTIONS (2)
  - Psoriasis [Unknown]
  - Neuritis [Recovered/Resolved]

NARRATIVE: CASE EVENT DATE: 20180530
